FAERS Safety Report 11781874 (Version 2)
Quarter: 2016Q1

REPORT INFORMATION
  Report Type: Spontaneous
  Country: US (occurrence: US)
  Receive Date: 20151126
  Receipt Date: 20160205
  Transmission Date: 20160525
  Serious: Yes (Other)
  Sender: FDA-Public Use
  Company Number: US-ASTRAZENECA-2015SF17865

PATIENT
  Age: 61 Year
  Sex: Male
  Weight: 88.5 kg

DRUGS (15)
  1. TESTOSTERONE. [Concomitant]
     Active Substance: TESTOSTERONE
     Dosage: 2 1/2 GM EACH DAY 75 MG
     Route: 061
  2. SENOKOT [Concomitant]
     Active Substance: SENNOSIDES
  3. OXYCODONE [Concomitant]
     Active Substance: OXYCODONE
  4. DULERA [Concomitant]
     Active Substance: FORMOTEROL FUMARATE DIHYDRATE\MOMETASONE FUROATE
     Dosage: 200/5 SIG: 2 PUFFS BID
  5. ATORVASTATIN [Concomitant]
     Active Substance: ATORVASTATIN
     Route: 048
  6. LINZESS [Concomitant]
     Active Substance: LINACLOTIDE
     Route: 048
  7. PATANOL [Concomitant]
     Active Substance: OLOPATADINE HYDROCHLORIDE
     Dosage: 1-2 DROPS EACH EYE BID
  8. OXYMORPHONE [Concomitant]
     Active Substance: OXYMORPHONE
  9. DILTIAZEM HYDROCHLORIDE EXTENDED RELEASE [Concomitant]
     Active Substance: DILTIAZEM HYDROCHLORIDE
     Dosage: DAILY
  10. KLONOPIN [Concomitant]
     Active Substance: CLONAZEPAM
     Indication: SLEEP DISORDER
     Dosage: 1-2 HS
     Route: 048
  11. XOPENEX [Concomitant]
     Active Substance: LEVALBUTEROL HYDROCHLORIDE
     Dosage: 1.25 1 AMP IN NEBULIZER BID AND PRN
  12. METHADONE [Concomitant]
     Active Substance: METHADONE HYDROCHLORIDE
  13. MOVANTIK [Suspect]
     Active Substance: NALOXEGOL OXALATE
     Indication: CONSTIPATION
     Route: 048
  14. PROVENTIL HFA [Concomitant]
     Active Substance: ALBUTEROL SULFATE
     Indication: ASTHMA
     Dosage: 2 PUFFS 4-6 HOURS
  15. DUONEB [Concomitant]
     Active Substance: ALBUTEROL SULFATE\IPRATROPIUM BROMIDE
     Dosage: 0.5/3.0 DAILY 4-6 VIA NEBULIZER

REACTIONS (3)
  - Productive cough [Unknown]
  - Dyspnoea [Unknown]
  - Lung disorder [Unknown]
